FAERS Safety Report 11387459 (Version 1)
Quarter: 2015Q3

REPORT INFORMATION
  Report Type: Other
  Country: FR (occurrence: FR)
  Receive Date: 20150817
  Receipt Date: 20150817
  Transmission Date: 20151125
  Serious: Yes (Hospitalization, Other)
  Sender: FDA-Public Use
  Company Number: FR-APOTEX-2015AP011228

PATIENT

DRUGS (8)
  1. RIVOTRIL [Concomitant]
     Active Substance: CLONAZEPAM
     Indication: BACK PAIN
     Dosage: 2.5 MG/ML
     Route: 048
  2. ZALDIAR [Concomitant]
     Active Substance: ACETAMINOPHEN\TRAMADOL HYDROCHLORIDE
     Indication: BACK PAIN
     Dosage: 3 UNITS DAILY
     Route: 065
  3. AGREAL [Suspect]
     Active Substance: VERALIPRIDE
     Indication: MENOPAUSE
     Dosage: UNK
     Route: 048
     Dates: start: 20060315, end: 200703
  4. FORLAX                             /00754501/ [Concomitant]
     Active Substance: POLYETHYLENE GLYCOL 4000
     Indication: BACK PAIN
     Dosage: 10 MG, UNK
     Route: 048
  5. HERCEPTIN [Concomitant]
     Active Substance: TRASTUZUMAB
     Indication: BREAST CANCER
     Dosage: UNK
     Route: 065
  6. PAXIL [Suspect]
     Active Substance: PAROXETINE HYDROCHLORIDE
     Indication: DYSTHYMIC DISORDER
     Dosage: 40 MG, DAILY
     Route: 048
     Dates: start: 2004, end: 2008
  7. ELISOR [Concomitant]
     Active Substance: PRAVASTATIN SODIUM
     Indication: HYPERCHOLESTEROLAEMIA
     Dosage: 10 MG, UNK
     Route: 048
  8. DAFLON                             /01026201/ [Concomitant]
     Active Substance: DIOSMIN\HESPERIDIN
     Indication: PRODUCT USED FOR UNKNOWN INDICATION
     Dosage: UNK
     Route: 065

REACTIONS (17)
  - Drug interaction [Unknown]
  - Akinesia [Unknown]
  - Parkinsonian gait [Unknown]
  - Memory impairment [Unknown]
  - Extrapyramidal disorder [Recovered/Resolved with Sequelae]
  - Bradykinesia [Unknown]
  - Parkinsonism [Unknown]
  - Morbid thoughts [Unknown]
  - Tremor [Unknown]
  - Vomiting [Unknown]
  - Cogwheel rigidity [Unknown]
  - Depression [Unknown]
  - Balance disorder [Unknown]
  - Sleep disorder [Unknown]
  - Dyskinesia [Recovered/Resolved]
  - Weight decreased [Unknown]
  - Language disorder [Unknown]

NARRATIVE: CASE EVENT DATE: 2006
